FAERS Safety Report 15530619 (Version 3)
Quarter: 2018Q4

REPORT INFORMATION
  Report Type: Spontaneous
  Country: CL (occurrence: CL)
  Receive Date: 20181018
  Receipt Date: 20181227
  Transmission Date: 20190205
  Serious: Yes (Hospitalization, Other)
  Sender: FDA-Public Use
  Company Number: CL-BIOMARINAP-CL-2018-120385

PATIENT
  Age: 7 Year
  Sex: Male
  Weight: 21 kg

DRUGS (11)
  1. ZINC SULFATE [Concomitant]
     Active Substance: ZINC SULFATE\ZINC SULFATE ANHYDROUS
     Indication: PRODUCT USED FOR UNKNOWN INDICATION
  2. NERVOTON [Concomitant]
     Indication: PRODUCT USED FOR UNKNOWN INDICATION
  3. PARACETAMOL [Concomitant]
     Active Substance: ACETAMINOPHEN
     Indication: PRODUCT USED FOR UNKNOWN INDICATION
  4. FOLIC ACID. [Concomitant]
     Active Substance: FOLIC ACID
     Indication: PRODUCT USED FOR UNKNOWN INDICATION
  5. FERROUS SULFATE. [Concomitant]
     Active Substance: FERROUS SULFATE
     Indication: PRODUCT USED FOR UNKNOWN INDICATION
  6. ALDURAZYME [Suspect]
     Active Substance: LARONIDASE
     Dosage: 100 DOSAGE FORM, QW
     Route: 041
     Dates: start: 20170106
  7. ASCORBIC ACID W/ERGOCALCIFEROL/RETINOL [Concomitant]
     Indication: PRODUCT USED FOR UNKNOWN INDICATION
  8. ALDURAZYME [Suspect]
     Active Substance: LARONIDASE
     Indication: MUCOPOLYSACCHARIDOSIS I
     Dosage: 5 DOSAGE FORM, QW
     Route: 041
     Dates: start: 20140501, end: 20161223
  9. ERGOCALCIFEROL. [Concomitant]
     Active Substance: ERGOCALCIFEROL
     Indication: PRODUCT USED FOR UNKNOWN INDICATION
  10. MALTOFER                           /00383901/ [Concomitant]
     Indication: PRODUCT USED FOR UNKNOWN INDICATION
     Dosage: UNK
  11. CHLORPHENAMINE [Concomitant]
     Active Substance: CHLORPHENIRAMINE MALEATE
     Indication: PREMEDICATION

REACTIONS (7)
  - Adenoidectomy [Recovered/Resolved]
  - Pyrexia [Recovered/Resolved]
  - Irritability [Recovered/Resolved]
  - Varicella [Recovered/Resolved]
  - Spinal deformity correction [Recovered/Resolved]
  - Blister [Recovered/Resolved]
  - Spinal column injury [Recovering/Resolving]

NARRATIVE: CASE EVENT DATE: 20161223
